FAERS Safety Report 6828613-8 (Version None)
Quarter: 2010Q3

REPORT INFORMATION
  Report Type: 
  Country: None (occurrence: None)
  Receive Date: 20100709
  Receipt Date: 20070214
  Transmission Date: 20110219
  Serious: No
  Sender: FDA-Public Use
  Company Number: US-PFIZER INC-2007013428

PATIENT
  Sex: Female
  Weight: 81.65 kg

DRUGS (8)
  1. CHANTIX [Suspect]
     Indication: SMOKING CESSATION THERAPY
     Dates: start: 20070207
  2. NEURONTIN [Concomitant]
  3. GLUCOPHAGE [Concomitant]
  4. TRAZODONE [Concomitant]
  5. AMBIEN [Concomitant]
  6. ATIVAN [Concomitant]
  7. THIORIDAZINE HCL [Concomitant]
  8. HYDROCODONE BITARTRATE [Concomitant]

REACTIONS (1)
  - DRUG INEFFECTIVE [None]
